FAERS Safety Report 4500605-3 (Version None)
Quarter: 2004Q4

REPORT INFORMATION
  Report Type: 
  Country: None (occurrence: None)
  Receive Date: 20041115
  Receipt Date: 20041109
  Transmission Date: 20050328
  Serious: Yes (Death)
  Sender: FDA-Public Use
  Company Number: US-JNJFOC-20040810098

PATIENT
  Sex: Female
  Weight: 38.56 kg

DRUGS (1)
  1. DURAGESIC [Suspect]
     Route: 062
     Dates: end: 20040626

REACTIONS (1)
  - DEATH [None]
